FAERS Safety Report 11866014 (Version 1)
Quarter: 2015Q4

REPORT INFORMATION
  Report Type: Spontaneous
  Country: US (occurrence: US)
  Receive Date: 20151223
  Receipt Date: 20151223
  Transmission Date: 20160305
  Serious: Yes (Hospitalization)
  Sender: FDA-Public Use
  Company Number: PHHY2015US163617

PATIENT
  Age: 42 Year
  Sex: Male

DRUGS (1)
  1. METFORMIN [Suspect]
     Active Substance: METFORMIN HYDROCHLORIDE
     Indication: PRODUCT USED FOR UNKNOWN INDICATION
     Dosage: 270 DF (270 GRAMS), ONCE/SINGLE
     Route: 065

REACTIONS (9)
  - Lactic acidosis [Recovering/Resolving]
  - Renal failure [Recovered/Resolved]
  - Anuria [Recovering/Resolving]
  - Acute kidney injury [Recovering/Resolving]
  - Shock [Recovering/Resolving]
  - Disseminated intravascular coagulation [Recovering/Resolving]
  - Multi-organ failure [Recovering/Resolving]
  - Intentional overdose [Recovering/Resolving]
  - Respiratory failure [Recovering/Resolving]
